FAERS Safety Report 15265289 (Version 1)
Quarter: 2018Q3

REPORT INFORMATION
  Report Type: Spontaneous
  Country: US (occurrence: US)
  Receive Date: 20180723
  Receipt Date: 20180723
  Transmission Date: 20181010
  Serious: Yes (Disabling)
  Sender: FDA-Public Use
  Company Number: None

PATIENT
  Age: 65 Year
  Weight: 83.25 kg

DRUGS (8)
  1. PLAVIX [Concomitant]
     Active Substance: CLOPIDOGREL BISULFATE
  2. CYMBALTA [Concomitant]
     Active Substance: DULOXETINE HYDROCHLORIDE
  3. ACETAMINOPHEN. [Concomitant]
     Active Substance: ACETAMINOPHEN
  4. SINEMET [Concomitant]
     Active Substance: CARBIDOPA\LEVODOPA
  5. MULTIVITAMIN [Concomitant]
     Active Substance: VITAMINS
  6. BUPRENORPHINE 8MG/NALOXONE 2MG [Suspect]
     Active Substance: BUPRENORPHINE\NALOXONE
     Indication: DRUG DEPENDENCE
     Dosage: ?          QUANTITY:45 DF DOSAGE FORM;?
     Route: 060
     Dates: start: 20180719, end: 20180722
  7. COLASE [Concomitant]
  8. BUPRENORPHINE 8MG/NALOXONE 2MG [Suspect]
     Active Substance: BUPRENORPHINE\NALOXONE
     Indication: PAIN

REACTIONS (6)
  - Withdrawal syndrome [None]
  - Hyperhidrosis [None]
  - Diarrhoea [None]
  - Irritability [None]
  - Product substitution issue [None]
  - Fatigue [None]

NARRATIVE: CASE EVENT DATE: 20180719
